FAERS Safety Report 10600447 (Version 2)
Quarter: 2014Q4

REPORT INFORMATION
  Report Type: Report from Study
  Country: US (occurrence: US)
  Receive Date: 20141124
  Receipt Date: 20141124
  Transmission Date: 20150529
  Serious: Yes (Other)
  Sender: FDA-Public Use
  Company Number: US-ROCHE-1480853

PATIENT
  Sex: Male

DRUGS (6)
  1. NUTROPIN AQ [Suspect]
     Active Substance: SOMATROPIN
     Route: 058
     Dates: start: 20141026
  2. XOPENEX [Concomitant]
     Active Substance: LEVALBUTEROL HYDROCHLORIDE
     Dosage: 0.63MG/ 3ML NEBULIZATION
     Route: 065
     Dates: start: 20101211
  3. NUTROPIN AQ [Suspect]
     Active Substance: SOMATROPIN
     Indication: GROWTH HORMONE DEFICIENCY
     Route: 058
  4. VENTOLIN [Concomitant]
     Active Substance: ALBUTEROL SULFATE
     Dosage: AEROSOL , INHALER
     Route: 065
     Dates: start: 20140419
  5. ALBUTEROL SULFATE. [Concomitant]
     Active Substance: ALBUTEROL SULFATE
     Dosage: AEROSOL INHALER
     Route: 065
     Dates: start: 20101211
  6. LEVALBUTEROL [Concomitant]
     Active Substance: LEVALBUTEROL
     Dosage: 1.25MG/ 3ML, NEBULIZATION
     Route: 065
     Dates: start: 20140419

REACTIONS (7)
  - Developmental delay [Unknown]
  - Flat affect [Unknown]
  - Headache [Unknown]
  - Obesity [Unknown]
  - Pallor [Unknown]
  - Eye swelling [Recovered/Resolved]
  - Hepatic enzyme increased [Unknown]
